APPROVED DRUG PRODUCT: CALCIUM GLUCONATE IN SODIUM CHLORIDE
Active Ingredient: CALCIUM GLUCONATE
Strength: 1GM/50ML (20MG/ML)
Dosage Form/Route: SOLUTION;INTRAVENOUS
Application: A217174 | Product #001 | TE Code: AP
Applicant: AMNEAL EU LTD
Approved: Sep 5, 2023 | RLD: No | RS: Yes | Type: RX